FAERS Safety Report 5081776-X (Version None)
Quarter: 2006Q3

REPORT INFORMATION
  Report Type: 
  Country: None (occurrence: None)
  Receive Date: 20060816
  Receipt Date: 20060725
  Transmission Date: 20061208
  Serious: Yes (Life-Threatening, Hospitalization, Other)
  Sender: FDA-Public Use
  Company Number: US-GLAXOSMITHKLINE-A0613494A

PATIENT
  Age: 63 Year
  Sex: Female
  Weight: 79.1 kg

DRUGS (2)
  1. LAMICTAL [Suspect]
     Indication: BIPOLAR DISORDER
     Dosage: 25MG PER DAY
     Route: 048
     Dates: start: 20060601, end: 20060703
  2. NO CONCURRENT MEDICATION [Concomitant]

REACTIONS (13)
  - CONFUSIONAL STATE [None]
  - DELIRIUM [None]
  - DRY MOUTH [None]
  - HYPOKALAEMIA [None]
  - HYPONATRAEMIA [None]
  - LETHARGY [None]
  - MALAISE [None]
  - MENTAL STATUS CHANGES [None]
  - NAUSEA [None]
  - ORAL PAIN [None]
  - RASH [None]
  - SUNBURN [None]
  - VOMITING [None]
